FAERS Safety Report 18528534 (Version 1)
Quarter: 2020Q4

REPORT INFORMATION
  Report Type: Spontaneous
  Country: US (occurrence: US)
  Receive Date: 20201120
  Receipt Date: 20201120
  Transmission Date: 20210114
  Serious: No
  Sender: FDA-Public Use
  Company Number: US-3M-2018-US-023459

PATIENT
  Age: 55 Year
  Sex: Male

DRUGS (3)
  1. 3M IOBAN SURGICAL DRAPES (6651EZ) [Concomitant]
  2. DURAPREP [Suspect]
     Active Substance: IODINE POVACRYLEX\ISOPROPYL ALCOHOL
     Indication: INFECTION PROPHYLAXIS
     Dosage: 26 ML SINGLE DOSE
     Route: 061
     Dates: start: 20181024, end: 20181024
  3. ADHESIVE REMOVER (BRAND UNKNOWN) APPLIED WHEN REMOVING DRAPES [Concomitant]

REACTIONS (2)
  - Skin abrasion [Unknown]
  - Skin exfoliation [Unknown]

NARRATIVE: CASE EVENT DATE: 20181024
